FAERS Safety Report 17108212 (Version 4)
Quarter: 2020Q1

REPORT INFORMATION
  Report Type: Spontaneous
  Country: US (occurrence: US)
  Receive Date: 20191204
  Receipt Date: 20200210
  Transmission Date: 20200409
  Serious: No
  Sender: FDA-Public Use
  Company Number: US-BIOGEN-2019BI00812603

PATIENT
  Age: 43 Year
  Sex: Female

DRUGS (2)
  1. TECFIDERA [Suspect]
     Active Substance: DIMETHYL FUMARATE
     Dosage: THEN TAKE 1?CAPSULE OF 240 MG?TWICE A DAY FOR 23?DAYS
     Route: 065
     Dates: start: 20191122
  2. TECFIDERA [Suspect]
     Active Substance: DIMETHYL FUMARATE
     Indication: MULTIPLE SCLEROSIS
     Dosage: TAKE 1 CAPSULE OF 120?MG TWICE A DAY FOR?7 DAYS,
     Route: 048
     Dates: start: 20191123

REACTIONS (6)
  - Constipation [Not Recovered/Not Resolved]
  - Multiple sclerosis relapse [Recovered/Resolved]
  - Hemianaesthesia [Unknown]
  - Flushing [Recovered/Resolved]
  - Drug interaction [Recovered/Resolved]
  - Nausea [Recovered/Resolved]

NARRATIVE: CASE EVENT DATE: 20191123
